FAERS Safety Report 6638785-6 (Version None)
Quarter: 2010Q1

REPORT INFORMATION
  Report Type: 
  Country: None (occurrence: None)
  Receive Date: 20100317
  Receipt Date: 20100304
  Transmission Date: 20100710
  Serious: Yes (Hospitalization, Other)
  Sender: FDA-Public Use
  Company Number: BR-PFIZER INC-2010028470

PATIENT
  Age: 64 Year
  Sex: Female
  Weight: 105 kg

DRUGS (4)
  1. NEURONTIN [Suspect]
     Dosage: 300 MG, EVERY TWELVE HOURS
     Route: 048
     Dates: start: 20090101
  2. INSULIN [Concomitant]
     Indication: DIABETES MELLITUS
     Dosage: UNK
     Route: 058
  3. DIPIRONA [Concomitant]
     Dosage: UNK
  4. METFORMIN [Concomitant]
     Indication: DIABETES MELLITUS
     Dosage: UNK

REACTIONS (10)
  - CARDIOVASCULAR INSUFFICIENCY [None]
  - CHEST PAIN [None]
  - DYSKINESIA [None]
  - HALLUCINATION [None]
  - HEMIPLEGIA [None]
  - HYPERTENSION [None]
  - MYOCARDIAL ISCHAEMIA [None]
  - SPEECH DISORDER [None]
  - SWELLING [None]
  - VASCULAR RUPTURE [None]
